FAERS Safety Report 14142280 (Version 1)
Quarter: 2017Q4

REPORT INFORMATION
  Report Type: Spontaneous
  Country: US (occurrence: US)
  Receive Date: 20171030
  Receipt Date: 20171030
  Transmission Date: 20180321
  Serious: No
  Sender: FDA-Public Use
  Company Number: US-IPSEN BIOPHARMACEUTICALS, INC.-2017-03651

PATIENT
  Age: 12 Year
  Sex: Male
  Weight: 24.94 kg

DRUGS (5)
  1. PROZAC [Suspect]
     Active Substance: FLUOXETINE HYDROCHLORIDE
     Indication: PRODUCT USED FOR UNKNOWN INDICATION
     Dates: end: 201704
  2. INCRELEX [Suspect]
     Active Substance: MECASERMIN
     Indication: INSULIN-LIKE GROWTH FACTOR DECREASED
     Route: 058
     Dates: start: 201704, end: 201704
  3. PROZAC [Suspect]
     Active Substance: FLUOXETINE HYDROCHLORIDE
     Dates: start: 201704
  4. INCRELEX [Suspect]
     Active Substance: MECASERMIN
     Indication: OFF LABEL USE
     Route: 058
     Dates: start: 201704
  5. MELATONIN [Concomitant]
     Active Substance: MELATONIN
     Dosage: 3-10 MG

REACTIONS (2)
  - Off label use [Unknown]
  - Headache [Not Recovered/Not Resolved]

NARRATIVE: CASE EVENT DATE: 201704
